FAERS Safety Report 21688272 (Version 1)
Quarter: 2022Q4

REPORT INFORMATION
  Report Type: Spontaneous
  Country: US (occurrence: None)
  Receive Date: 20221206
  Receipt Date: 20221206
  Transmission Date: 20230112
  Serious: No
  Sender: FDA-Public Use
  Company Number: 2022A368858

PATIENT
  Sex: Female
  Weight: 52.2 kg

DRUGS (4)
  1. BUDESONIDE\FORMOTEROL\GLYCOPYRRONIUM [Suspect]
     Active Substance: BUDESONIDE\FORMOTEROL\GLYCOPYRRONIUM
     Indication: Chronic obstructive pulmonary disease
     Dosage: 2 PUFFS IN THE MORNING/2 PUFFS AT NIGHT
     Route: 055
  2. SYMBICORT [Suspect]
     Active Substance: BUDESONIDE\FORMOTEROL FUMARATE DIHYDRATE
     Indication: Chronic obstructive pulmonary disease
     Dosage: 2 PUFFS TWICE DAILY
     Route: 055
  3. SYMBICORT [Suspect]
     Active Substance: BUDESONIDE\FORMOTEROL FUMARATE DIHYDRATE
     Indication: Chronic obstructive pulmonary disease
     Dosage: UNKNOWN DOSE AND FREQUENCY UNKNOWN
     Route: 055
  4. NP THYROID [Concomitant]
     Active Substance: LEVOTHYROXINE\LIOTHYRONINE

REACTIONS (10)
  - Oropharyngeal pain [Unknown]
  - Hypothyroidism [Unknown]
  - Productive cough [Unknown]
  - Quality of life decreased [Unknown]
  - Dyspnoea [Unknown]
  - Oropharyngeal blistering [Unknown]
  - Cough [Unknown]
  - Drug ineffective [Unknown]
  - Drug intolerance [Unknown]
  - Adverse event [Unknown]
